FAERS Safety Report 8270518-2 (Version None)
Quarter: 2012Q2

REPORT INFORMATION
  Report Type: 
  Country: None (occurrence: None)
  Receive Date: 20120410
  Receipt Date: 20120402
  Transmission Date: 20120825
  Serious: Yes (Hospitalization, Other)
  Sender: FDA-Public Use
  Company Number: JP-ASTELLAS-2012JP002838

PATIENT
  Age: 45 Year
  Sex: Male
  Weight: 65.56 kg

DRUGS (39)
  1. TACROLIMUS [Suspect]
     Dosage: 6 MG, BID
     Route: 048
     Dates: start: 20110712, end: 20110718
  2. TACROLIMUS [Suspect]
     Dosage: 8 MG, BID
     Route: 048
     Dates: start: 20110719, end: 20110724
  3. TACROLIMUS [Suspect]
     Dosage: 7 MG, BID
     Route: 048
     Dates: start: 20110725, end: 20110731
  4. HIRUDOID [Concomitant]
     Indication: ERYTHEMA MULTIFORME
     Dosage: UNK
     Route: 065
     Dates: start: 20110815, end: 20120322
  5. TACROLIMUS [Suspect]
     Dosage: 10 MG, BID
     Route: 048
     Dates: start: 20110915, end: 20110928
  6. TACROLIMUS [Suspect]
     Dosage: 6 MG, BID
     Route: 048
     Dates: start: 20110929, end: 20111012
  7. ASACOL [Concomitant]
     Dosage: 3600 MG, UNKNOWN/D
     Route: 048
     Dates: start: 20110721, end: 20110907
  8. IMURAN [Concomitant]
     Dosage: 50 MG, UNKNOWN/D
     Route: 048
     Dates: start: 20111027, end: 20120111
  9. PREDNISOLONE [Concomitant]
     Dosage: 20 MG, UNKNOWN/D
     Route: 048
     Dates: start: 20110825, end: 20110914
  10. PREDNISOLONE [Concomitant]
     Dosage: 5 MG, UNKNOWN/D
     Route: 048
     Dates: start: 20111014, end: 20111026
  11. MYSER [Concomitant]
     Indication: ERYTHEMA MULTIFORME
     Dosage: UNK
     Route: 061
     Dates: start: 20110831, end: 20110906
  12. NEOMALLERMIN TR [Concomitant]
     Indication: ERYTHEMA MULTIFORME
     Dosage: 12 MG, UNKNOWN/D
     Route: 048
     Dates: start: 20110905, end: 20111003
  13. COTRIM [Suspect]
     Dosage: 4 DF, UNKNOWN/D
     Route: 048
     Dates: start: 20110719, end: 20110906
  14. ASACOL [Concomitant]
     Indication: COLITIS ULCERATIVE
     Dosage: 4800 MG, UNKNOWN/D
     Route: 048
     Dates: end: 20110720
  15. PREDNISOLONE [Concomitant]
     Dosage: 10 MG, UNKNOWN/D
     Route: 048
     Dates: start: 20110929, end: 20111013
  16. BETAMETHASONE [Concomitant]
     Indication: COLITIS ULCERATIVE
     Dosage: 2 MG, UNKNOWN/D
     Route: 054
     Dates: end: 20110901
  17. DIFLORASONE DIACETATE [Concomitant]
     Indication: ERYTHEMA MULTIFORME
     Dosage: UNK
     Route: 061
     Dates: start: 20110907, end: 20110912
  18. TACROLIMUS [Suspect]
     Dosage: 3 MG, BID
     Route: 048
     Dates: start: 20110711, end: 20110711
  19. IMURAN [Concomitant]
     Indication: COLITIS ULCERATIVE
     Dosage: 100 MG, UNKNOWN/D
     Route: 048
     Dates: start: 20110909, end: 20111026
  20. PREDNISOLONE [Concomitant]
     Dosage: 2.5 MG, UNKNOWN/D
     Route: 048
     Dates: start: 20111027, end: 20111123
  21. KENALOG [Concomitant]
     Indication: ORAL DISCOMFORT
     Dosage: UNK
     Route: 065
     Dates: start: 20110825, end: 20110901
  22. PATANOL [Concomitant]
     Indication: CONJUNCTIVITIS ALLERGIC
     Dosage: UNK
     Route: 047
     Dates: start: 20110831, end: 20110906
  23. PREDNISOLONE [Concomitant]
     Dosage: 30 MG, UNKNOWN/D
     Route: 048
     Dates: start: 20110729, end: 20110811
  24. ALLEGRA [Concomitant]
     Indication: ERYTHEMA MULTIFORME
     Dosage: 120 MG, UNKNOWN/D
     Route: 048
     Dates: start: 20110825, end: 20110830
  25. ORADOL [Concomitant]
     Indication: ORAL DISCOMFORT
     Dosage: UNK
     Route: 048
     Dates: start: 20110825, end: 20110901
  26. ALMETA [Concomitant]
     Indication: ERYTHEMA MULTIFORME
     Dosage: UNK
     Route: 061
     Dates: start: 20110831, end: 20110920
  27. PENTASA [Concomitant]
     Indication: COLITIS ULCERATIVE
     Dosage: 2250 MG, UNKNOWN/D
     Route: 048
     Dates: start: 20110908
  28. LANSOPRAZOLE [Concomitant]
     Dosage: 30 MG, UNKNOWN/D
     Route: 048
     Dates: start: 20110719, end: 20110907
  29. NEGMIN [Concomitant]
     Indication: ORAL DISCOMFORT
     Dosage: UNK
     Route: 061
     Dates: start: 20110825, end: 20110901
  30. OLOPATADINE HCL [Concomitant]
     Indication: ERYTHEMA MULTIFORME
     Dosage: 10 MG, UNKNOWN/D
     Route: 048
     Dates: start: 20110831, end: 20111026
  31. PREDNISOLONE [Concomitant]
     Indication: ERYTHEMA MULTIFORME
     Dosage: UNK
     Route: 061
     Dates: start: 20110831, end: 20110907
  32. TACROLIMUS [Suspect]
     Indication: COLITIS ULCERATIVE
     Dosage: 8 MG, BID
     Route: 048
     Dates: start: 20110801, end: 20110824
  33. TACROLIMUS [Suspect]
     Dosage: 6 MG, BID
     Route: 048
     Dates: start: 20110825, end: 20110914
  34. PREDNISOLONE [Concomitant]
     Indication: COLITIS ULCERATIVE
     Dosage: 40 MG, UNKNOWN/D
     Route: 048
     Dates: end: 20110721
  35. PREDNISOLONE [Concomitant]
     Dosage: 35 MG, UNKNOWN/D
     Route: 048
     Dates: start: 20110722, end: 20110728
  36. PREDNISOLONE [Concomitant]
     Dosage: 25 MG, UNKNOWN/D
     Route: 048
     Dates: start: 20110812, end: 20110824
  37. PREDNISOLONE [Concomitant]
     Dosage: 15 MG, UNKNOWN/D
     Route: 048
     Dates: start: 20110915, end: 20110928
  38. BIOLACTIS [Concomitant]
     Indication: COLITIS ULCERATIVE
     Dosage: 3 G, UNKNOWN/D
     Route: 048
  39. MYSER [Concomitant]
     Dosage: UNK
     Route: 061
     Dates: start: 20110913, end: 20110927

REACTIONS (5)
  - ERYTHEMA MULTIFORME [None]
  - HYPOMAGNESAEMIA [None]
  - ORAL DISCOMFORT [None]
  - TREMOR [None]
  - INTRAOCULAR PRESSURE INCREASED [None]
